FAERS Safety Report 6079529-9 (Version None)
Quarter: 2009Q1

REPORT INFORMATION
  Report Type: 
  Country: None (occurrence: None)
  Receive Date: 20090217
  Receipt Date: 20090205
  Transmission Date: 20090719
  Serious: Yes (Other)
  Sender: FDA-Public Use
  Company Number: DE-BAXTER-2009BH002030

PATIENT
  Age: 30 Year
  Sex: Female

DRUGS (1)
  1. GAMMAGARD LIQUID [Suspect]
     Indication: DRUG USE FOR UNKNOWN INDICATION
     Route: 065

REACTIONS (1)
  - ANAPHYLACTIC SHOCK [None]
